FAERS Safety Report 17161750 (Version 2)
Quarter: 2020Q1

REPORT INFORMATION
  Report Type: Spontaneous
  Country: US (occurrence: US)
  Receive Date: 20191217
  Receipt Date: 20200120
  Transmission Date: 20200409
  Serious: Yes (Hospitalization)
  Sender: FDA-Public Use
  Company Number: US-CELGENEUS-USA-20191011937

PATIENT
  Sex: Female
  Weight: 93 kg

DRUGS (1)
  1. REVLIMID [Suspect]
     Active Substance: LENALIDOMIDE
     Indication: PLASMA CELL MYELOMA
     Dosage: 15 MILLIGRAM
     Route: 048
     Dates: start: 20191010

REACTIONS (3)
  - Confusional state [Unknown]
  - Asthenia [Unknown]
  - Vomiting [Unknown]

NARRATIVE: CASE EVENT DATE: 2019
